FAERS Safety Report 10077724 (Version 1)
Quarter: 2014Q2

REPORT INFORMATION
  Report Type: Report from Study
  Country: JP (occurrence: JP)
  Receive Date: 20140414
  Receipt Date: 20140414
  Transmission Date: 20141212
  Serious: No
  Sender: FDA-Public Use
  Company Number: JP-B.I. PHARMACEUTICALS,INC./RIDGEFIELD-2014-BI-15800NB

PATIENT
  Age: 65 Year
  Sex: Male
  Weight: 73 kg

DRUGS (7)
  1. TRAZENTA [Suspect]
     Indication: TYPE 2 DIABETES MELLITUS
     Dosage: 5 MG
     Route: 048
     Dates: start: 20121115, end: 20130408
  2. HERBESSER [Concomitant]
     Dosage: 200 MG
     Route: 048
  3. NORVASC [Concomitant]
     Dosage: 2.5 MG
     Route: 048
  4. ZYLORIC [Concomitant]
     Dosage: 100 MG
     Route: 048
  5. LIVALO [Concomitant]
     Dosage: 1 MG
     Route: 048
  6. GASTER [Concomitant]
     Dosage: 40 MG
     Route: 048
  7. CONSTAN [Concomitant]
     Dosage: 0.8 MG
     Route: 048

REACTIONS (1)
  - Urticaria [Recovered/Resolved]
